FAERS Safety Report 9542463 (Version 2)
Quarter: 2013Q3

REPORT INFORMATION
  Report Type: Spontaneous
  Country: FR (occurrence: FR)
  Receive Date: 20130923
  Receipt Date: 20130923
  Transmission Date: 20140515
  Serious: Yes (Other)
  Sender: FDA-Public Use
  Company Number: FR-PFIZER INC-2013206356

PATIENT
  Age: 69 Year
  Sex: Male
  Weight: 85 kg

DRUGS (12)
  1. CHAMPIX [Suspect]
     Indication: SMOKING CESSATION THERAPY
     Dosage: 0.5 MG, DAILY
     Dates: start: 20130610, end: 201306
  2. CHAMPIX [Suspect]
     Dosage: 1 MG, DAILY
     Dates: start: 201306, end: 20130623
  3. CHAMPIX [Suspect]
     Dosage: 1 MG, 2X/DAY
     Dates: start: 20130624, end: 20130711
  4. INEXIUM [Concomitant]
     Dosage: UNK
     Route: 048
  5. KARDEGIC [Concomitant]
     Dosage: UNK
     Route: 048
  6. DIAMICRON [Concomitant]
     Dosage: UNK
     Route: 048
  7. METFORMIN [Concomitant]
     Dosage: UNK
     Route: 048
  8. TAREG [Concomitant]
     Dosage: UNK
     Route: 048
  9. PROPRANOLOL [Concomitant]
     Dosage: UNK
     Route: 048
  10. ATORVASTATIN [Concomitant]
     Dosage: UNK
     Route: 048
  11. LASILIX [Concomitant]
     Dosage: UNK
     Route: 048
  12. PLAVIX [Concomitant]
     Dosage: UNK
     Route: 048

REACTIONS (2)
  - Erysipelas [Recovered/Resolved with Sequelae]
  - Dyshidrotic eczema [Recovered/Resolved with Sequelae]
